FAERS Safety Report 23909683 (Version 1)
Quarter: 2024Q2

REPORT INFORMATION
  Report Type: Spontaneous
  Country: IL (occurrence: IL)
  Receive Date: 20240528
  Receipt Date: 20240528
  Transmission Date: 20240716
  Serious: Yes (Other)
  Sender: FDA-Public Use
  Company Number: IL-TEVA-VS-3201070

PATIENT
  Age: 61 Year
  Sex: Female

DRUGS (7)
  1. PACLITAXEL [Suspect]
     Active Substance: PACLITAXEL
     Dosage: DOSAGE: 175
     Route: 065
     Dates: start: 20240220
  2. DIAZEPAM [Concomitant]
     Active Substance: DIAZEPAM
  3. Calciless [Concomitant]
  4. ENALAPRIL MALEATE [Concomitant]
     Active Substance: ENALAPRIL MALEATE
  5. FOROL [Concomitant]
  6. METFORMIN HYDROCHLORIDE [Concomitant]
     Active Substance: METFORMIN HYDROCHLORIDE
  7. Recital [Concomitant]

REACTIONS (3)
  - Apnoea [Unknown]
  - Asthenia [Unknown]
  - Erythema [Unknown]

NARRATIVE: CASE EVENT DATE: 20240101
